FAERS Safety Report 9871036 (Version 1)
Quarter: 2014Q1

REPORT INFORMATION
  Report Type: Spontaneous
  Country: US (occurrence: US)
  Receive Date: 20140205
  Receipt Date: 20140205
  Transmission Date: 20141002
  Serious: Yes (Other)
  Sender: FDA-Public Use
  Company Number: CHPA2014US001977

PATIENT
  Age: 62 Year
  Sex: Male

DRUGS (3)
  1. TRANSDERM SCOP [Suspect]
     Indication: MOTION SICKNESS
     Dosage: 1 DF, Q72H
     Route: 062
     Dates: start: 20140118
  2. TRANSDERM SCOP [Suspect]
     Dosage: 1 DF, Q72H
     Route: 062
  3. BONINE [Concomitant]
     Dosage: UNK
     Dates: start: 20140127, end: 20140127

REACTIONS (7)
  - Ear infection viral [Recovered/Resolved]
  - Bronchitis [Recovering/Resolving]
  - Feeling abnormal [Recovering/Resolving]
  - Nausea [Recovering/Resolving]
  - Headache [Recovered/Resolved]
  - Dizziness [Recovering/Resolving]
  - Malaise [Recovering/Resolving]
